FAERS Safety Report 20552500 (Version 1)
Quarter: 2022Q1

REPORT INFORMATION
  Report Type: Spontaneous
  Country: US (occurrence: US)
  Receive Date: 20220304
  Receipt Date: 20220304
  Transmission Date: 20220423
  Serious: No
  Sender: FDA-Public Use
  Company Number: US-PFIZER INC-202200327165

PATIENT
  Age: 70 Year
  Sex: Female
  Weight: 74.84 kg

DRUGS (4)
  1. IBRANCE [Interacting]
     Active Substance: PALBOCICLIB
     Indication: Breast cancer metastatic
     Dosage: 125 MG
     Dates: start: 202105
  2. IBRANCE [Interacting]
     Active Substance: PALBOCICLIB
     Dosage: 100 MG
     Dates: start: 202107
  3. IBRANCE [Interacting]
     Active Substance: PALBOCICLIB
     Dosage: 75 MG, CYCLIC (75MG, TABLET, BY MOUTH, ONCE DAILY FOR 21 DAYS ON, 7 DAY OFF)
     Route: 048
     Dates: start: 202111
  4. LOTENSIN [Interacting]
     Active Substance: BENAZEPRIL HYDROCHLORIDE
     Indication: Hypertension
     Dosage: UNK

REACTIONS (5)
  - Drug interaction [Not Recovered/Not Resolved]
  - Presyncope [Unknown]
  - Dizziness [Not Recovered/Not Resolved]
  - Asthenia [Unknown]
  - Blood pressure abnormal [Unknown]

NARRATIVE: CASE EVENT DATE: 20210101
